FAERS Safety Report 4582830-9 (Version None)
Quarter: 2005Q1

REPORT INFORMATION
  Report Type: 
  Country: None (occurrence: None)
  Receive Date: 20050215
  Receipt Date: 20030116
  Transmission Date: 20050727
  Serious: Yes (Death, Hospitalization)
  Sender: FDA-Public Use
  Company Number: US-AMGEN-US041144

PATIENT
  Age: 69 Year
  Sex: Male

DRUGS (11)
  1. ETANERCEPT [Suspect]
     Indication: WEGENER'S GRANULOMATOSIS
     Route: 058
     Dates: start: 20020919, end: 20030101
  2. CYCLOPHOSPHAMIDE [Suspect]
     Dates: start: 19970101
  3. METHOTREXATE [Concomitant]
  4. AZATHIOPRINE [Concomitant]
  5. PREDNISONE [Concomitant]
  6. TRIMETHOPRIM-SULFAMETHOXAZOLE [Concomitant]
  7. FUROSEMIDE [Concomitant]
  8. LORAZEPAM [Concomitant]
  9. GLIMEPIRIDE [Concomitant]
  10. CARVEDILOL [Concomitant]
  11. DAPSONE [Concomitant]

REACTIONS (9)
  - ACUTE PRERENAL FAILURE [None]
  - ATRIAL FIBRILLATION [None]
  - AZOTAEMIA [None]
  - CARDIAC ARREST [None]
  - CARDIAC FAILURE CONGESTIVE [None]
  - DIALYSIS [None]
  - EJECTION FRACTION DECREASED [None]
  - ELECTROLYTE IMBALANCE [None]
  - RENAL FAILURE [None]
